FAERS Safety Report 6106098-7 (Version None)
Quarter: 2009Q1

REPORT INFORMATION
  Report Type: 
  Country: None (occurrence: None)
  Receive Date: 20090227
  Receipt Date: 20080620
  Transmission Date: 20090719
  Serious: Yes (Other)
  Sender: FDA-Public Use
  Company Number: 173380USA

PATIENT
  Age: 50 Year
  Sex: Female

DRUGS (7)
  1. PROPOFOL [Suspect]
     Indication: ENDOSCOPY
     Dosage: (40 MG), INTRAVENOUS (NOT OTHERWISE SPECIFIED ; (20 MG) ; (10 MG) ; (10 MG) - STOPPED
     Route: 042
  2. PROPOFOL [Suspect]
     Indication: SEDATION
     Dosage: (40 MG), INTRAVENOUS (NOT OTHERWISE SPECIFIED ; (20 MG) ; (10 MG) ; (10 MG) - STOPPED
     Route: 042
  3. MIDAZOLAM HYDROCHLORIDE [Suspect]
     Dosage: (2 MG), INTRAVENOUS (NOT OTHERWISE SPECIFIED)
     Route: 042
  4. ESTROGENS CONJUGATED [Concomitant]
  5. BUPROPION HCL [Concomitant]
  6. HYDROCODONE [Concomitant]
  7. IREBESARTAN [Concomitant]

REACTIONS (9)
  - ASPIRATION [None]
  - COUGH [None]
  - LARYNGOSPASM [None]
  - MYOCLONUS [None]
  - OPISTHOTONUS [None]
  - OXYGEN SATURATION DECREASED [None]
  - SALIVARY HYPERSECRETION [None]
  - THERAPEUTIC RESPONSE DECREASED [None]
  - WHEEZING [None]
